FAERS Safety Report 21981039 (Version 1)
Quarter: 2023Q1

REPORT INFORMATION
  Report Type: Spontaneous
  Country: ES (occurrence: ES)
  Receive Date: 20230211
  Receipt Date: 20230211
  Transmission Date: 20230418
  Serious: Yes (Death, Life-Threatening, Hospitalization)
  Sender: FDA-Public Use
  Company Number: None

PATIENT
  Age: 65 Year
  Sex: Female

DRUGS (3)
  1. BORTEZOMIB [Suspect]
     Active Substance: BORTEZOMIB
     Indication: Monoclonal gammopathy
     Dosage: 2.33 MILLIGRAMS (1.3MG/M2) FOUR DAYS IN EACH CYCLE, TWO CYCLES, BORTEZOMIB (2928A)
     Route: 065
     Dates: start: 20221031, end: 20221209
  2. AMIODARONE [Suspect]
     Active Substance: AMIODARONE
     Indication: Atrial fibrillation
     Dosage: 200MG EVERY DAY EXCEPT THURSDAY AND SUNDAY , AMIODARONA (392A)
     Route: 065
     Dates: start: 2019, end: 202301
  3. CYCLOPHOSPHAMIDE [Suspect]
     Active Substance: CYCLOPHOSPHAMIDE
     Indication: Monoclonal gammopathy
     Dosage: CICLOFOSFAMIDA (120A)
     Route: 065
     Dates: start: 20221026, end: 20221227

REACTIONS (1)
  - Interstitial lung disease [Fatal]

NARRATIVE: CASE EVENT DATE: 20230111
